FAERS Safety Report 7654473-1 (Version None)
Quarter: 2011Q3

REPORT INFORMATION
  Report Type: 
  Country: None (occurrence: None)
  Receive Date: 20110803
  Receipt Date: 20110728
  Transmission Date: 20111222
  Serious: Yes (Hospitalization)
  Sender: FDA-Public Use
  Company Number: FR-ABBOTT-11P-056-0842102-00

PATIENT
  Sex: Female

DRUGS (9)
  1. ALBUTEROL [Suspect]
     Indication: UTERINE HYPERTONUS
     Route: 054
  2. TIMOFEROL [Suspect]
     Indication: ANAEMIA
     Route: 065
     Dates: start: 20100329
  3. TAMIFLU [Suspect]
     Indication: PYREXIA
  4. UVEDOSE [Suspect]
     Indication: PRODUCT USED FOR UNKNOWN INDICATION
     Dates: start: 20100216, end: 20100216
  5. PROGESTERONE [Suspect]
     Indication: PRODUCT USED FOR UNKNOWN INDICATION
     Route: 065
     Dates: start: 20100109
  6. TAMIFLU [Suspect]
     Indication: INFLUENZA
     Dates: start: 20091201
  7. MONAZOL [Suspect]
     Indication: MIOSIS
     Route: 061
     Dates: start: 20100216
  8. VOGALENE [Suspect]
     Indication: VOMITING
     Route: 054
     Dates: start: 20091116
  9. ACETAMINOPHEN [Suspect]
     Indication: UTERINE HYPERTONUS
     Route: 065
     Dates: start: 20100109, end: 20100109

REACTIONS (4)
  - FUNGAL INFECTION [None]
  - HOSPITALISATION [None]
  - UTERINE HYPERTONUS [None]
  - ANAEMIA [None]
